FAERS Safety Report 4848122-5 (Version None)
Quarter: 2005Q4

REPORT INFORMATION
  Report Type: 
  Country: None (occurrence: None)
  Receive Date: 20051208
  Receipt Date: 20051130
  Transmission Date: 20060501
  Serious: Yes (Hospitalization, Disabling)
  Sender: FDA-Public Use
  Company Number: US-AVENTIS-200519975US

PATIENT
  Sex: Male

DRUGS (6)
  1. LOVENOX [Suspect]
     Indication: PROPHYLAXIS
     Route: 058
  2. ACCUPRIL [Concomitant]
     Dosage: DOSE: UNKNOWN
  3. LASIX [Concomitant]
     Dosage: DOSE: UNKNOWN
  4. ATENOLOL [Concomitant]
     Dosage: DOSE: UNKNOWN
  5. NEXIUM [Concomitant]
     Dosage: DOSE: UNK
  6. AMIODARONE [Concomitant]
     Dosage: DOSE: UNKNOWN

REACTIONS (6)
  - AORTIC OCCLUSION [None]
  - DEEP VEIN THROMBOSIS [None]
  - LEG AMPUTATION [None]
  - PULMONARY EMBOLISM [None]
  - PYREXIA [None]
  - SYSTEMIC INFLAMMATORY RESPONSE SYNDROME [None]
